FAERS Safety Report 9668356 (Version 2)
Quarter: 2014Q1

REPORT INFORMATION
  Report Type: Report from Study
  Country: JP (occurrence: JP)
  Receive Date: 20131104
  Receipt Date: 20140124
  Transmission Date: 20141002
  Serious: Yes (Hospitalization, Other)
  Sender: FDA-Public Use
  Company Number: JP-TAKEDA-2013TJP002367

PATIENT
  Age: 71 Year
  Sex: Male

DRUGS (6)
  1. LANSOPRAZOLE [Suspect]
     Indication: PROPHYLAXIS AGAINST GASTROINTESTINAL ULCER
     Dosage: 15 MG, QD
     Route: 048
     Dates: start: 20110104
  2. BAYASPIRIN [Concomitant]
     Indication: THROMBOSIS PROPHYLAXIS
     Dosage: 100 MG, 1 DAYS
     Route: 048
  3. OLMETEC [Concomitant]
     Dosage: 20 MG, 1 DAYS
     Route: 048
  4. AMLODIN OD [Concomitant]
     Dosage: 5 MG, 1 DAYS
     Route: 048
  5. PLAVIX [Concomitant]
     Indication: MYOCARDIAL INFARCTION
     Dosage: 75 MG, 1 DAYS
     Route: 048
  6. SELBEX [Concomitant]
     Dosage: 100 MG, 1 DAYS
     Route: 048

REACTIONS (1)
  - Colon cancer [Recovering/Resolving]
